FAERS Safety Report 15027642 (Version 1)
Quarter: 2018Q2

REPORT INFORMATION
  Report Type: Spontaneous
  Country: US (occurrence: US)
  Receive Date: 20180525
  Receipt Date: 20180525
  Transmission Date: 20180711
  Serious: Yes (Life-Threatening)
  Sender: FDA-Public Use
  Company Number: None

PATIENT
  Age: 53 Year
  Sex: Male

DRUGS (1)
  1. BUPIVACAINE. [Suspect]
     Active Substance: BUPIVACAINE
     Indication: PAIN
     Dates: start: 20180111, end: 20180111

REACTIONS (9)
  - Oropharyngeal pain [None]
  - Anaphylactic reaction [None]
  - Pain in extremity [None]
  - Chest pain [None]
  - Pharyngeal oedema [None]
  - Tremor [None]
  - Hypoaesthesia [None]
  - Cold sweat [None]
  - Hypertension [None]

NARRATIVE: CASE EVENT DATE: 20180111
